FAERS Safety Report 6712179-7 (Version None)
Quarter: 2010Q2

REPORT INFORMATION
  Report Type: 
  Country: None (occurrence: None)
  Receive Date: 20100505
  Receipt Date: 20100224
  Transmission Date: 20101027
  Serious: Yes (Other)
  Sender: FDA-Public Use
  Company Number: PHHY2010JP27780

PATIENT
  Age: 75 Year
  Sex: Female

DRUGS (4)
  1. COMTAN [Suspect]
     Indication: MENTAL DISORDER
     Dosage: 700 MG, DAILY
  2. CARBIDOPA AND LEVODOPA [Concomitant]
     Indication: PARKINSON'S DISEASE
     Dosage: 300 MG, DAILY
  3. CARBIDOPA AND LEVODOPA [Concomitant]
     Dosage: 400 MG, DAILY
  4. CARBIDOPA AND LEVODOPA [Concomitant]
     Dosage: 650 MG, DAILY

REACTIONS (7)
  - ABNORMAL BEHAVIOUR [None]
  - CATATONIA [None]
  - IMMOBILE [None]
  - MUSCLE RIGIDITY [None]
  - MUTISM [None]
  - NEGATIVISM [None]
  - WAXY FLEXIBILITY [None]
